FAERS Safety Report 5577580-6 (Version None)
Quarter: 2007Q4

REPORT INFORMATION
  Report Type: 
  Country: None (occurrence: None)
  Receive Date: 20071130
  Receipt Date: 20070921
  Transmission Date: 20080405
  Serious: No
  Sender: FDA-Public Use
  Company Number: US200709005047

PATIENT
  Sex: Female

DRUGS (2)
  1. BYETTA [Suspect]
     Dosage: SUBCUTANEOUS
     Route: 058
  2. EXENATIDE UNK STRENTH PEN, DISPOSABLE DEVICE (EXENATIDE PEN (UNKNOWN S [Concomitant]

REACTIONS (2)
  - FOOD CRAVING [None]
  - NAUSEA [None]
